FAERS Safety Report 10043558 (Version 1)
Quarter: 2014Q1

REPORT INFORMATION
  Report Type: Spontaneous
  Country: US (occurrence: None)
  Receive Date: 20140327
  Receipt Date: 20140327
  Transmission Date: 20141002
  Serious: Yes (Hospitalization)
  Sender: FDA-Public Use
  Company Number: None

PATIENT
  Age: 36 Year
  Sex: Male
  Weight: 84.1 kg

DRUGS (1)
  1. BACLOFEN [Suspect]
     Indication: PAIN
     Dates: start: 20140127, end: 20140128

REACTIONS (3)
  - Sedation [None]
  - Overdose [None]
  - Unresponsive to stimuli [None]
